FAERS Safety Report 5989596-6 (Version None)
Quarter: 2008Q4

REPORT INFORMATION
  Report Type: 
  Country: None (occurrence: None)
  Receive Date: 20081210
  Receipt Date: 20081202
  Transmission Date: 20090506
  Serious: Yes (Hospitalization)
  Sender: FDA-Public Use
  Company Number: US-GENENTECH-271129

PATIENT
  Sex: Male
  Weight: 81.6 kg

DRUGS (10)
  1. BEVACIZUMAB [Suspect]
     Indication: MALIGNANT MELANOMA
     Dosage: 873 MG, UNK
     Route: 042
     Dates: start: 20080724
  2. ABRAXANE [Suspect]
     Indication: METASTATIC MALIGNANT MELANOMA
     Dosage: 307.5 MG, UNK
     Route: 042
     Dates: start: 20080724
  3. TOPAMAX [Concomitant]
     Indication: MIGRAINE
     Dosage: 100 MG, UNK
  4. ELAVIL [Concomitant]
     Indication: PAIN
     Dosage: 50 MG, QD
  5. LIPITOR [Concomitant]
     Indication: DRUG USE FOR UNKNOWN INDICATION
     Dosage: 80 MG, UNK
  6. CELEBREX [Concomitant]
     Indication: DRUG USE FOR UNKNOWN INDICATION
     Dosage: 200 MG, UNK
  7. PROZAC [Concomitant]
     Indication: DRUG USE FOR UNKNOWN INDICATION
  8. PROTONIX [Concomitant]
     Indication: DRUG USE FOR UNKNOWN INDICATION
     Dosage: 40 MG, QD
  9. VICODIN [Concomitant]
     Indication: PAIN
     Dosage: 5 MG, QID
  10. OXYCODONE HCL [Concomitant]
     Indication: PAIN
     Dosage: 10 MG, UNK

REACTIONS (1)
  - SUPRAVENTRICULAR TACHYCARDIA [None]
